FAERS Safety Report 17893431 (Version 1)
Quarter: 2020Q2

REPORT INFORMATION
  Report Type: Other
  Country: FR (occurrence: FR)
  Receive Date: 20200615
  Receipt Date: 20200615
  Transmission Date: 20200714
  Serious: Yes (Hospitalization, Other)
  Sender: FDA-Public Use
  Company Number: FR-CELLTRION INC.-2020FR023094

PATIENT

DRUGS (11)
  1. PNEUMOCOCCAL VACCINE POLYVALENT NOS [Concomitant]
     Active Substance: PNEUMOCOCCAL VACCINE POLYVALENT
     Indication: PRODUCT USED FOR UNKNOWN INDICATION
     Dosage: UNK
     Route: 065
     Dates: start: 2018
  2. FLIXABI [Suspect]
     Active Substance: INFLIXIMAB
     Indication: CROHN^S DISEASE
     Dosage: 10 MG/KG, 6 WEEK
     Route: 065
  3. PARACETAMOL [Concomitant]
     Active Substance: ACETAMINOPHEN
     Indication: PRODUCT USED FOR UNKNOWN INDICATION
     Dosage: UNKNOWN
     Route: 065
  4. FERINJECT [Concomitant]
     Active Substance: FERRIC CARBOXYMALTOSE
     Indication: PRODUCT USED FOR UNKNOWN INDICATION
     Dosage: 500 MG
     Route: 065
     Dates: start: 20190916
  5. INFLIXIMAB (UNKNOWN) [Suspect]
     Active Substance: INFLIXIMAB
     Dosage: 10 MG/KG, 4 WEEK
     Route: 065
     Dates: start: 20180620
  6. INFLIXIMAB (UNKNOWN) [Suspect]
     Active Substance: INFLIXIMAB
     Dosage: 10 MG/KG, 5 WEEK
     Route: 065
     Dates: start: 20200107
  7. INFLIXIMAB (UNKNOWN) [Suspect]
     Active Substance: INFLIXIMAB
     Indication: CROHN^S DISEASE
     Dosage: UNK
     Route: 065
     Dates: start: 201804
  8. FLIXABI [Suspect]
     Active Substance: INFLIXIMAB
     Dosage: 10 MG/KG, 5 WEEK
     Route: 042
     Dates: start: 20180525
  9. MICROLAX [Concomitant]
     Indication: PRODUCT USED FOR UNKNOWN INDICATION
     Dosage: UNKNOWN
     Route: 065
  10. FLIXABI [Suspect]
     Active Substance: INFLIXIMAB
     Dosage: UNKNOWN. RESUMPTION AFTER SLEEVE GASTRECTOMY
     Route: 065
     Dates: start: 20190301
  11. SPASFON [PHLOROGLUCINOL;TRIMETHYLPHLOROGLUCINOL] [Concomitant]
     Active Substance: PHLOROGLUCINOL\1,3,5-TRIMETHOXYBENZENE
     Indication: PRODUCT USED FOR UNKNOWN INDICATION
     Dosage: UNKNOWN
     Route: 065

REACTIONS (15)
  - Productive cough [Unknown]
  - Diarrhoea [Unknown]
  - Respiratory symptom [Recovered/Resolved]
  - Anosmia [Unknown]
  - Asthenia [Unknown]
  - Renal cyst [Unknown]
  - Headache [Unknown]
  - Ageusia [Unknown]
  - Gastroenteritis [Unknown]
  - Suspected COVID-19 [Unknown]
  - Crohn^s disease [Not Recovered/Not Resolved]
  - Pilonidal sinus repair [Recovered/Resolved]
  - Abdominal pain [Unknown]
  - Cough [Unknown]
  - Product use issue [Unknown]

NARRATIVE: CASE EVENT DATE: 20190401
